FAERS Safety Report 7339372-7 (Version None)
Quarter: 2011Q1

REPORT INFORMATION
  Report Type: 
  Country: None (occurrence: None)
  Receive Date: 20110308
  Receipt Date: 20110301
  Transmission Date: 20110831
  Serious: Yes (Disabling)
  Sender: FDA-Public Use
  Company Number: US-US-EMD SERONO, INC.-7003399

PATIENT
  Sex: Male

DRUGS (4)
  1. REBIF [Suspect]
     Indication: MULTIPLE SCLEROSIS
     Route: 058
     Dates: start: 20070614
  2. BLADDER PILLS [Concomitant]
  3. CARDIAC PILLS [Concomitant]
     Indication: CARDIAC DISORDER
     Dates: start: 19950101
  4. PAIN MEDICATION [Concomitant]
     Indication: PAIN

REACTIONS (1)
  - MULTIPLE SCLEROSIS RELAPSE [None]
